FAERS Safety Report 4382434-7 (Version None)
Quarter: 2004Q2

REPORT INFORMATION
  Report Type: 
  Country: None (occurrence: None)
  Receive Date: 20040621
  Receipt Date: 20040604
  Transmission Date: 20050107
  Serious: Yes (Hospitalization)
  Sender: FDA-Public Use
  Company Number: A-US2004-06520

PATIENT
  Age: 69 Year
  Sex: Male

DRUGS (7)
  1. TRACLEER [Suspect]
     Indication: PULMONARY HYPERTENSION
     Dosage: 125 MG, BID, ORAL;  62.5 MG, BID, ORAL
     Route: 048
     Dates: start: 20030401, end: 20030501
  2. TRACLEER [Suspect]
     Indication: PULMONARY HYPERTENSION
     Dosage: 125 MG, BID, ORAL;  62.5 MG, BID, ORAL
     Route: 048
     Dates: start: 20030501, end: 20030601
  3. XANAX [Concomitant]
  4. PERCOCET (PARACETAMOL, OXYCODONE TEREPHTHALATE, OXYCODONE HYDROCHLORID [Concomitant]
  5. PROCARDIA [Concomitant]
  6. PREVACID [Concomitant]
  7. ALBUTEROL [Concomitant]

REACTIONS (2)
  - ABDOMINAL PAIN [None]
  - NAUSEA [None]
